FAERS Safety Report 14257953 (Version 1)
Quarter: 2017Q4

REPORT INFORMATION
  Report Type: Report from Study
  Country: US (occurrence: US)
  Receive Date: 20171207
  Receipt Date: 20171207
  Transmission Date: 20180321
  Serious: Yes (Hospitalization)
  Sender: FDA-Public Use
  Company Number: US-BIOGEN-2017BI00490120

PATIENT
  Sex: Female

DRUGS (1)
  1. TECFIDERA [Suspect]
     Active Substance: DIMETHYL FUMARATE
     Indication: MULTIPLE SCLEROSIS
     Dosage: MAITNENACE DOSE
     Route: 048
     Dates: start: 201309

REACTIONS (3)
  - Haemangioma of bone [Unknown]
  - Ewing^s sarcoma [Unknown]
  - Lymphocyte count decreased [Unknown]
